FAERS Safety Report 5642590-7 (Version None)
Quarter: 2008Q1

REPORT INFORMATION
  Report Type: 
  Country: None (occurrence: None)
  Receive Date: 20080227
  Receipt Date: 20080227
  Transmission Date: 20080703
  Serious: Yes (Hospitalization)
  Sender: FDA-Public Use
  Company Number: None

PATIENT
  Sex: Male
  Weight: 108.8633 kg

DRUGS (4)
  1. TERAZOSIN HCL [Suspect]
     Indication: HYPERTENSION
     Dosage: (THERAPY DATES: PRIOR TO ADMISSION)
  2. GLYBURIDE [Suspect]
     Indication: DIABETES MELLITUS
     Dosage: GLYBURIDE 5MG PO BID  (THERAPY DATES: PRIOR TO ADMISSION)
     Route: 048
  3. LISINOPRIL [Suspect]
     Dosage: (THERAPY DATES: PRIOR TO ADMISSION
  4. SIMVASTATIN [Concomitant]

REACTIONS (3)
  - EXCORIATION [None]
  - LACERATION [None]
  - LOSS OF CONSCIOUSNESS [None]
